FAERS Safety Report 4736610-1 (Version None)
Quarter: 2005Q3

REPORT INFORMATION
  Report Type: 
  Country: None (occurrence: None)
  Receive Date: 20050804
  Receipt Date: 20050804
  Transmission Date: 20060218
  Serious: No
  Sender: FDA-Public Use
  Company Number: None

PATIENT
  Age: 45 Year
  Sex: Female
  Weight: 71.759 kg

DRUGS (6)
  1. LEVAQUIN [Suspect]
     Indication: BACTERAEMIA
     Dosage: 1 TAB Q DAY X  8 DAYS
     Dates: start: 20050731, end: 20050801
  2. LEVAQUIN [Suspect]
     Indication: URINARY TRACT INFECTION
     Dosage: 1 TAB Q DAY X  8 DAYS
     Dates: start: 20050731, end: 20050801
  3. PHENERGAN HCL [Concomitant]
  4. TYLENOL (CAPLET) [Concomitant]
  5. K-DUR 10 [Concomitant]
  6. PROTONIX [Concomitant]

REACTIONS (5)
  - GINGIVAL BLISTER [None]
  - ORAL MUCOSAL BLISTERING [None]
  - PALATAL DISORDER [None]
  - STOMATITIS [None]
  - TONGUE BLISTERING [None]
